FAERS Safety Report 12295080 (Version 1)
Quarter: 2016Q2

REPORT INFORMATION
  Report Type: Spontaneous
  Country: FR (occurrence: FR)
  Receive Date: 20160422
  Receipt Date: 20160422
  Transmission Date: 20160815
  Serious: Yes (Hospitalization, Other)
  Sender: FDA-Public Use
  Company Number: FR-GLAXOSMITHKLINE-FR2016GSK055339

PATIENT
  Age: 39 Year
  Sex: Female

DRUGS (5)
  1. STILNOX [Concomitant]
     Active Substance: ZOLPIDEM TARTRATE
     Indication: PRODUCT USED FOR UNKNOWN INDICATION
     Dosage: 10 MG, QD
     Route: 065
  2. LAMICTAL [Suspect]
     Active Substance: LAMOTRIGINE
     Indication: BIPOLAR DISORDER
     Dosage: 2 DF, QD
     Route: 048
     Dates: start: 20160212, end: 20160310
  3. LEXOMIL [Concomitant]
     Active Substance: BROMAZEPAM
     Indication: PRODUCT USED FOR UNKNOWN INDICATION
     Dosage: 0.5 UNK, TID
     Route: 065
  4. EFFEXOR [Concomitant]
     Active Substance: VENLAFAXINE HYDROCHLORIDE
     Indication: PRODUCT USED FOR UNKNOWN INDICATION
     Dosage: 75 MG, QD
     Route: 065
  5. LITHIUM. [Concomitant]
     Active Substance: LITHIUM
     Indication: PRODUCT USED FOR UNKNOWN INDICATION
     Dosage: UNK
     Route: 065

REACTIONS (12)
  - Headache [Unknown]
  - Pyrexia [Recovered/Resolved]
  - Hyperhidrosis [Recovering/Resolving]
  - Asthenia [Unknown]
  - Nausea [Unknown]
  - Incorrect dose administered [Unknown]
  - Liver injury [Recovering/Resolving]
  - Oedema [Recovering/Resolving]
  - Rash [Recovering/Resolving]
  - Dizziness [Recovering/Resolving]
  - Drug reaction with eosinophilia and systemic symptoms [Recovering/Resolving]
  - Lymph node pain [Unknown]

NARRATIVE: CASE EVENT DATE: 20160212
